FAERS Safety Report 21555646 (Version 1)
Quarter: 2022Q4

REPORT INFORMATION
  Report Type: Spontaneous
  Country: FR (occurrence: FR)
  Receive Date: 20221104
  Receipt Date: 20221104
  Transmission Date: 20230113
  Serious: Yes (Other)
  Sender: FDA-Public Use
  Company Number: None

PATIENT
  Sex: Female
  Weight: 2.71 kg

DRUGS (4)
  1. DISODIUM PHOSPHATE MONOHYDRATE [Suspect]
     Active Substance: SODIUM PHOSPHATE, DIBASIC, MONOHYDRATE
     Indication: Organ transplant
     Dosage: UNIT DOSE : 5 MG   , FREQUENCY TIME :  1 DAY  , DURATION :  261 DAYS
     Dates: start: 20210603, end: 20220205
  2. TACROLIMUS [Suspect]
     Active Substance: TACROLIMUS
     Indication: Organ transplant
     Dosage: UNIT DOSE :  5 MG  , FREQUENCY TIME :  2 DAY  , DURATION :  261 DAYS
     Dates: start: 20210603, end: 20220205
  3. AZATHIOPRINE SODIUM [Suspect]
     Active Substance: AZATHIOPRINE SODIUM
     Indication: Organ transplant
     Dosage: UNIT DOSE : 75 MG   , FREQUENCY TIME :  1 DAY  , DURATION :  261 DAYS
     Dates: start: 20210603, end: 20220205
  4. CREON [Suspect]
     Active Substance: PANCRELIPASE AMYLASE\PANCRELIPASE LIPASE\PANCRELIPASE PROTEASE
     Indication: Cystic fibrosis
     Dosage: UNIT DOSE :6 DF   , FREQUENCY TIME : 1 DAY  , DURATION :  261 DAYS
     Dates: start: 20210603, end: 20220205

REACTIONS (1)
  - Congenital central nervous system anomaly [Not Recovered/Not Resolved]

NARRATIVE: CASE EVENT DATE: 20211102
